FAERS Safety Report 9740645 (Version 1)
Quarter: 2013Q4

REPORT INFORMATION
  Report Type: Spontaneous
  Country: US (occurrence: US)
  Receive Date: 20131209
  Receipt Date: 20131209
  Transmission Date: 20140711
  Serious: Yes (Other)
  Sender: FDA-Public Use
  Company Number: US-009507513-1312USA002450

PATIENT
  Age: 15 Year
  Sex: Female

DRUGS (3)
  1. NEXPLANON [Suspect]
     Indication: CONTRACEPTION
     Dosage: UNK
     Route: 059
     Dates: start: 20130918
  2. ADDERALL TABLETS [Concomitant]
     Route: 048
  3. LEXAPRO [Concomitant]

REACTIONS (7)
  - Blindness [Unknown]
  - Headache [Unknown]
  - Depression [Unknown]
  - Hypoaesthesia [Unknown]
  - Decreased appetite [Unknown]
  - Asthenia [Unknown]
  - Acne [Unknown]
